FAERS Safety Report 13803367 (Version 1)
Quarter: 2017Q3

REPORT INFORMATION
  Report Type: Spontaneous
  Country: AU (occurrence: AU)
  Receive Date: 20170728
  Receipt Date: 20170728
  Transmission Date: 20171127
  Serious: Yes (Disabling)
  Sender: FDA-Public Use
  Company Number: GB-NAPPMUNDI-GBR-2010-0006035

PATIENT
  Age: 74 Year

DRUGS (16)
  1. OXYCODONE HYDROCHLORIDE. [Suspect]
     Active Substance: OXYCODONE HYDROCHLORIDE
     Indication: PRODUCT USED FOR UNKNOWN INDICATION
  2. CODEINE PHOSPHATE [Suspect]
     Active Substance: CODEINE PHOSPHATE
     Indication: PRODUCT USED FOR UNKNOWN INDICATION
     Dosage: 30 MG, UNK
  3. RAMIPRIL. [Concomitant]
     Active Substance: RAMIPRIL
  4. CALCITRIOL. [Concomitant]
     Active Substance: CALCITRIOL
  5. ALLOPURINOL. [Concomitant]
     Active Substance: ALLOPURINOL
  6. CELECOXIB. [Concomitant]
     Active Substance: CELECOXIB
  7. DOTHIEPIN [Concomitant]
     Active Substance: DOTHIEPIN\DOTHIEPIN HYDROCHLORIDE
  8. SODIUM BICARBONATE. [Concomitant]
     Active Substance: SODIUM BICARBONATE
  9. DEXTROPROPOXYPHENE [Suspect]
     Active Substance: PROPOXYPHENE HYDROCHLORIDE
     Indication: PRODUCT USED FOR UNKNOWN INDICATION
  10. PARACETAMOL [Suspect]
     Active Substance: ACETAMINOPHEN
     Indication: PRODUCT USED FOR UNKNOWN INDICATION
     Dosage: 500 MG, UNK
  11. ACETAZOLAMIDE. [Concomitant]
     Active Substance: ACETAZOLAMIDE
  12. FUROSEMIDE. [Concomitant]
     Active Substance: FUROSEMIDE
  13. PREDNISOLONE. [Concomitant]
     Active Substance: PREDNISOLONE
  14. FLUNITRAZEPAM [Concomitant]
     Active Substance: FLUNITRAZEPAM
  15. METOPROLOL. [Concomitant]
     Active Substance: METOPROLOL
  16. ASPIRIN. [Concomitant]
     Active Substance: ASPIRIN

REACTIONS (1)
  - Deafness neurosensory [Unknown]
